FAERS Safety Report 24346383 (Version 1)
Quarter: 2024Q3

REPORT INFORMATION
  Report Type: Report from Study
  Country: IE (occurrence: IE)
  Receive Date: 20240921
  Receipt Date: 20240921
  Transmission Date: 20241017
  Serious: Yes (Other)
  Sender: ROCHE
  Company Number: IE-ROCHE-10000080780

PATIENT
  Sex: Male

DRUGS (1)
  1. OCREVUS [Suspect]
     Active Substance: OCRELIZUMAB
     Indication: Product used for unknown indication
     Route: 042

REACTIONS (4)
  - Fall [Unknown]
  - Back pain [Recovering/Resolving]
  - Soft tissue injury [Recovering/Resolving]
  - Injury [Recovering/Resolving]
